FAERS Safety Report 9601330 (Version 2)
Quarter: 2013Q4

REPORT INFORMATION
  Report Type: Report from Study
  Country: JP (occurrence: JP)
  Receive Date: 20131007
  Receipt Date: 20131121
  Transmission Date: 20140711
  Serious: Yes (Other)
  Sender: FDA-Public Use
  Company Number: JP-ROCHE-1281403

PATIENT
  Sex: 0

DRUGS (3)
  1. BEVACIZUMAB [Suspect]
     Indication: NON-SMALL CELL LUNG CANCER
     Dosage: UP TO 6 CYCLES
     Route: 065
  2. DOCETAXEL [Suspect]
     Indication: NON-SMALL CELL LUNG CANCER
     Dosage: UP TO 6 CYCLES
     Route: 065
  3. CARBOPLATIN [Suspect]
     Indication: NON-SMALL CELL LUNG CANCER
     Dosage: (AUC=6), UP TO 6 CYCLES
     Route: 065

REACTIONS (16)
  - Anaemia [Unknown]
  - Neutropenia [Unknown]
  - Thrombocytopenia [Unknown]
  - Febrile neutropenia [Unknown]
  - Hypertension [Unknown]
  - Cholecystitis [Unknown]
  - Blood alkaline phosphatase increased [Unknown]
  - Hyperkalaemia [Unknown]
  - Proteinuria [Unknown]
  - Diarrhoea [Unknown]
  - Decreased appetite [Unknown]
  - Nausea [Unknown]
  - Constipation [Unknown]
  - Infection [Unknown]
  - Stomatitis [Unknown]
  - Cancer pain [Unknown]
